FAERS Safety Report 8921363 (Version 1)
Quarter: 2012Q4

REPORT INFORMATION
  Report Type: 
  Country: US (occurrence: US)
  Receive Date: 20121121
  Receipt Date: 20121121
  Transmission Date: 20130627
  Serious: Yes (Other)
  Sender: FDA-Public Use
  Company Number: US-WATSON-2012-19460

PATIENT
  Age: 15 Year
  Sex: Female

DRUGS (1)
  1. MINOCYCLINE HCL (WATSON LABORATORIES) [Suspect]
     Indication: ACNE
     Dosage: UNK, unknown
     Route: 065

REACTIONS (8)
  - Benign intracranial hypertension [Not Recovered/Not Resolved]
  - Papilloedema [Recovered/Resolved]
  - Headache [Recovered/Resolved]
  - Eye pain [Unknown]
  - Nausea [Unknown]
  - Muscle spasms [Unknown]
  - Diplopia [Recovered/Resolved]
  - Visual field defect [Recovered/Resolved]
